FAERS Safety Report 23687544 (Version 1)
Quarter: 2024Q1

REPORT INFORMATION
  Report Type: Spontaneous
  Country: PT (occurrence: PT)
  Receive Date: 20240329
  Receipt Date: 20240329
  Transmission Date: 20240409
  Serious: Yes (Other)
  Sender: FDA-Public Use
  Company Number: None

PATIENT
  Age: 35 Year
  Sex: Female
  Weight: 76 kg

DRUGS (1)
  1. OPTIRAY 350 [Suspect]
     Active Substance: IOVERSOL
     Indication: Diagnostic procedure
     Route: 042
     Dates: start: 20240319, end: 20240319

REACTIONS (3)
  - Musculoskeletal discomfort [Recovered/Resolved]
  - Paraesthesia oral [Recovered/Resolved]
  - Papule [Recovered/Resolved]

NARRATIVE: CASE EVENT DATE: 20240319
